FAERS Safety Report 8200268-X (Version None)
Quarter: 2012Q1

REPORT INFORMATION
  Report Type: 
  Country: None (occurrence: None)
  Receive Date: 20120312
  Receipt Date: 20120308
  Transmission Date: 20120608
  Serious: Yes (Hospitalization, Other)
  Sender: FDA-Public Use
  Company Number: JP-PFIZER INC-2012061653

PATIENT
  Sex: Female

DRUGS (1)
  1. CABERGOLINE [Suspect]
     Indication: REPRODUCTIVE TRACT DISORDER
     Dosage: 0.25 MG, MONTHLY
     Route: 048

REACTIONS (1)
  - LOSS OF CONSCIOUSNESS [None]
